FAERS Safety Report 4972844-9 (Version None)
Quarter: 2006Q2

REPORT INFORMATION
  Report Type: 
  Country: None (occurrence: None)
  Receive Date: 20060414
  Receipt Date: 20060403
  Transmission Date: 20061013
  Serious: Yes (Death, Life-Threatening)
  Sender: FDA-Public Use
  Company Number: TR-NOVOPROD-252153

PATIENT
  Age: 2 Year
  Sex: Female

DRUGS (2)
  1. NOVOSEVEN [Suspect]
     Indication: PROPHYLAXIS
     Dosage: 2.4 MG + SECOND UNKNOWN DOSE
     Dates: start: 20060330, end: 20060330
  2. FRESH FROZEN PLASMA [Concomitant]
     Dates: start: 20060330, end: 20060330

REACTIONS (6)
  - ACUTE RESPIRATORY DISTRESS SYNDROME [None]
  - HEPATIC FAILURE [None]
  - HEPATITIS [None]
  - LOSS OF CONSCIOUSNESS [None]
  - METABOLIC DISORDER [None]
  - PULMONARY HAEMORRHAGE [None]
